FAERS Safety Report 9450463 (Version 2)
Quarter: 2013Q3

REPORT INFORMATION
  Report Type: Spontaneous
  Country: US (occurrence: US)
  Receive Date: 20130809
  Receipt Date: 20130925
  Transmission Date: 20140515
  Serious: No
  Sender: FDA-Public Use
  Company Number: US-PFIZER INC-2013229661

PATIENT
  Age: 55 Year
  Sex: Female
  Weight: 45.35 kg

DRUGS (2)
  1. ESTRING [Suspect]
     Indication: VULVOVAGINAL DRYNESS
     Dosage: UNK
     Route: 067
  2. ESTRING [Suspect]
     Indication: POLLAKIURIA

REACTIONS (1)
  - Drug ineffective [Unknown]
